FAERS Safety Report 6112335-5 (Version None)
Quarter: 2009Q1

REPORT INFORMATION
  Report Type: 
  Country: None (occurrence: None)
  Receive Date: 20090311
  Receipt Date: 20090311
  Transmission Date: 20090719
  Serious: No
  Sender: FDA-Public Use
  Company Number: None

PATIENT

DRUGS (4)
  1. ROPINIROLE HYDROCHLORIDE [Suspect]
     Indication: MUSCULOSKELETAL DISORDER
     Dosage: 1 TAB 2 DAYS 2 TAB 3 DAYS 2/20 + 2/21 1 PILL 2/22 + 2/23 2 PILLS
     Dates: start: 20090220
  2. ROPINIROLE HYDROCHLORIDE [Suspect]
     Indication: MUSCULOSKELETAL DISORDER
     Dosage: 1 TAB 2 DAYS 2 TAB 3 DAYS 2/20 + 2/21 1 PILL 2/22 + 2/23 2 PILLS
     Dates: start: 20090221
  3. ROPINIROLE HYDROCHLORIDE [Suspect]
     Indication: MUSCULOSKELETAL DISORDER
     Dosage: 1 TAB 2 DAYS 2 TAB 3 DAYS 2/20 + 2/21 1 PILL 2/22 + 2/23 2 PILLS
     Dates: start: 20090222
  4. ROPINIROLE HYDROCHLORIDE [Suspect]
     Indication: MUSCULOSKELETAL DISORDER
     Dosage: 1 TAB 2 DAYS 2 TAB 3 DAYS 2/20 + 2/21 1 PILL 2/22 + 2/23 2 PILLS
     Dates: start: 20090223

REACTIONS (4)
  - DRUG INEFFECTIVE [None]
  - FEAR [None]
  - FEELING ABNORMAL [None]
  - HEADACHE [None]
